FAERS Safety Report 7808311-4 (Version None)
Quarter: 2011Q4

REPORT INFORMATION
  Report Type: 
  Country: None (occurrence: None)
  Receive Date: 20111012
  Receipt Date: 20111003
  Transmission Date: 20120403
  Serious: No
  Sender: FDA-Public Use
  Company Number: US-BIOGENIDEC-2011BI037881

PATIENT
  Age: 43 Year
  Sex: Male

DRUGS (3)
  1. BACLOFEN [Concomitant]
     Indication: PAIN IN EXTREMITY
     Dates: start: 20110701
  2. AVONEX [Suspect]
     Route: 030
     Dates: start: 20110912
  3. AVONEX [Suspect]
     Indication: MULTIPLE SCLEROSIS
     Route: 030
     Dates: start: 20110905, end: 20110911

REACTIONS (6)
  - LOSS OF CONTROL OF LEGS [None]
  - MOBILITY DECREASED [None]
  - MUSCULOSKELETAL STIFFNESS [None]
  - CHILLS [None]
  - FATIGUE [None]
  - PAIN [None]
